FAERS Safety Report 8936407 (Version 1)
Quarter: 2012Q4

REPORT INFORMATION
  Report Type: 
  Country: DE (occurrence: DE)
  Receive Date: 20121130
  Receipt Date: 20121130
  Transmission Date: 20130627
  Serious: Yes (Hospitalization, Other)
  Sender: FDA-Public Use
  Company Number: DE-ELI_LILLY_AND_COMPANY-DE201112002761

PATIENT
  Sex: Male

DRUGS (1)
  1. ZYPADHERA [Suspect]
     Indication: DELUSIONAL DISORDER, UNSPECIFIED TYPE
     Dosage: 210 mg, UNK
     Route: 030
     Dates: start: 20111104, end: 20111104

REACTIONS (12)
  - Delirium [Recovered/Resolved]
  - Psychomotor skills impaired [Recovered/Resolved]
  - Speech disorder [Recovered/Resolved]
  - Disorientation [Recovered/Resolved]
  - Anxiety [Recovered/Resolved]
  - Abnormal behaviour [Recovered/Resolved]
  - Agitation [Recovered/Resolved]
  - Confusional state [Recovered/Resolved]
  - Fear [Recovered/Resolved]
  - Hallucination, visual [Recovered/Resolved]
  - Personality disorder [Unknown]
  - Leukocytosis [Unknown]
